FAERS Safety Report 19682511 (Version 4)
Quarter: 2022Q2

REPORT INFORMATION
  Report Type: Spontaneous
  Country: JP (occurrence: JP)
  Receive Date: 20210810
  Receipt Date: 20220428
  Transmission Date: 20220721
  Serious: Yes (Other)
  Sender: FDA-Public Use
  Company Number: JP-CHUGAI-2021008840AA

PATIENT
  Age: 76 Year
  Sex: Male
  Weight: 54 kg

DRUGS (6)
  1. ACTEMRA [Suspect]
     Active Substance: TOCILIZUMAB
     Indication: Giant cell arteritis
     Route: 058
     Dates: start: 20210630, end: 20210630
  2. ALFAROL [Suspect]
     Active Substance: ALFACALCIDOL
     Indication: Product used for unknown indication
     Dosage: 0.25 MICROGRAM, QD
     Route: 048
     Dates: start: 20210611
  3. CILOSTAZOL [Suspect]
     Active Substance: CILOSTAZOL
     Indication: Product used for unknown indication
     Route: 048
  4. RABEPRAZOLE SODIUM [Suspect]
     Active Substance: RABEPRAZOLE SODIUM
     Indication: Product used for unknown indication
     Dosage: 10 MILLIGRAM, QD
     Route: 048
     Dates: start: 20210619
  5. FERROUS CITRATE [Suspect]
     Active Substance: FERROUS CITRATE
     Indication: Product used for unknown indication
     Route: 048
  6. SULFAMETHOXAZOLE\TRIMETHOPRIM [Suspect]
     Active Substance: SULFAMETHOXAZOLE\TRIMETHOPRIM
     Indication: Product used for unknown indication
     Dosage: 1 DOSAGE FORM, BIW
     Route: 048
     Dates: start: 20210427

REACTIONS (3)
  - Pneumonia [Recovering/Resolving]
  - Hepatic function abnormal [Recovering/Resolving]
  - Hepatomegaly [Recovering/Resolving]

NARRATIVE: CASE EVENT DATE: 20210708
